APPROVED DRUG PRODUCT: IODIXANOL
Active Ingredient: IODIXANOL
Strength: 55%
Dosage Form/Route: INJECTABLE;INJECTION
Application: A214271 | Product #001 | TE Code: AP
Applicant: JIANGSU HENGRUI PHARMACEUTICALS CO LTD
Approved: May 19, 2022 | RLD: No | RS: No | Type: RX